FAERS Safety Report 23895954 (Version 1)
Quarter: 2024Q2

REPORT INFORMATION
  Report Type: Spontaneous
  Country: ES (occurrence: ES)
  Receive Date: 20240524
  Receipt Date: 20240524
  Transmission Date: 20240716
  Serious: Yes (Hospitalization, Other)
  Sender: FDA-Public Use
  Company Number: ES-SA-2024SA152880

PATIENT
  Sex: Male

DRUGS (6)
  1. ELOCTATE [Suspect]
     Active Substance: EFMOROCTOCOG ALFA
     Indication: Factor VIII deficiency
     Dosage: UNK UNK, BIW
     Route: 065
     Dates: start: 2018
  2. ELOCTATE [Suspect]
     Active Substance: EFMOROCTOCOG ALFA
     Indication: Factor VIII deficiency
     Dosage: UNK UNK, BIW
     Route: 065
     Dates: start: 2018
  3. ELOCTATE [Suspect]
     Active Substance: EFMOROCTOCOG ALFA
     Dosage: SECONDARY PROPHYLAXIS3000IU/72
     Route: 065
  4. ELOCTATE [Suspect]
     Active Substance: EFMOROCTOCOG ALFA
     Dosage: SECONDARY PROPHYLAXIS3000IU/72
     Route: 065
  5. EMICIZUMAB [Concomitant]
     Active Substance: EMICIZUMAB
     Dosage: UNK
     Dates: start: 202109
  6. EMICIZUMAB [Concomitant]
     Active Substance: EMICIZUMAB
     Dosage: DECREASED BY HALF
     Dates: start: 202201

REACTIONS (7)
  - Haemarthrosis [Unknown]
  - Haemophilic arthropathy [Unknown]
  - Bacteraemia [Unknown]
  - Haematuria [Unknown]
  - Pyrexia [Unknown]
  - Synovitis [Unknown]
  - Joint effusion [Unknown]

NARRATIVE: CASE EVENT DATE: 20210101
